FAERS Safety Report 6048752-1 (Version None)
Quarter: 2009Q1

REPORT INFORMATION
  Report Type: 
  Country: None (occurrence: None)
  Receive Date: 20090123
  Receipt Date: 20090115
  Transmission Date: 20090719
  Serious: Yes (Hospitalization)
  Sender: FDA-Public Use
  Company Number: FR-ASTRAZENECA-2009CG00165

PATIENT
  Age: 32026 Day
  Sex: Female

DRUGS (10)
  1. CARBOCAINE [Suspect]
     Indication: LOCAL ANAESTHESIA
     Route: 053
     Dates: start: 20081014, end: 20081014
  2. CARBOCAINE [Suspect]
     Indication: CATARACT OPERATION
     Route: 053
     Dates: start: 20081014, end: 20081014
  3. EPINEPHRINE [Suspect]
     Indication: CATARACT OPERATION
     Route: 047
     Dates: start: 20081014, end: 20081014
  4. TETRACAINE POLYGYL STERILE OPHTHALMIC SOLUTION [Suspect]
     Indication: CATARACT OPERATION
     Dates: start: 20081014, end: 20081014
  5. TROPICAMIDE [Suspect]
     Indication: CATARACT OPERATION
     Route: 047
     Dates: start: 20081014, end: 20081014
  6. OCUFEN [Suspect]
     Indication: CATARACT OPERATION
     Route: 047
     Dates: start: 20081014, end: 20081014
  7. TOBRADEX [Suspect]
     Indication: CATARACT OPERATION
     Route: 047
     Dates: start: 20081014, end: 20081014
  8. NEOSYNEPHRINE [Suspect]
     Indication: CATARACT OPERATION
     Route: 047
     Dates: start: 20081014, end: 20081014
  9. PILOCARPINE [Suspect]
     Indication: CATARACT OPERATION
     Route: 047
     Dates: start: 20081014, end: 20081014
  10. STERDEX [Suspect]
     Indication: CATARACT OPERATION
     Route: 047
     Dates: start: 20081014, end: 20081014

REACTIONS (3)
  - ENDOPHTHALMITIS [None]
  - UVEITIS [None]
  - VITRITIS [None]
